FAERS Safety Report 9693085 (Version 1)
Quarter: 2013Q4

REPORT INFORMATION
  Report Type: Spontaneous
  Country: US (occurrence: US)
  Receive Date: 20131118
  Receipt Date: 20131118
  Transmission Date: 20140711
  Serious: No
  Sender: FDA-Public Use
  Company Number: US-BAYER-2013-138585

PATIENT
  Age: 65 Year
  Sex: Male

DRUGS (7)
  1. BETASERON [Suspect]
  2. AMPYRA [Suspect]
     Dosage: 10 MG, Q12HR
  3. BACLOFEN [Concomitant]
  4. PROVIGIL [Concomitant]
  5. MELATONIN [Concomitant]
  6. VIAGRA [Concomitant]
  7. TRAVATAN [Concomitant]

REACTIONS (1)
  - Injection site mass [None]
